FAERS Safety Report 9304689 (Version 1)
Quarter: 2013Q2

REPORT INFORMATION
  Report Type: Report from Study
  Country: DE (occurrence: DE)
  Receive Date: 20130523
  Receipt Date: 20130523
  Transmission Date: 20140414
  Serious: Yes (Death, Hospitalization, Other)
  Sender: FDA-Public Use
  Company Number: DE-ROCHE-1225346

PATIENT
  Age: 61 Year
  Sex: Female

DRUGS (5)
  1. AVASTIN [Suspect]
     Indication: OVARIAN CANCER
     Dosage: LAST DOSE PRIOR TO SAE WAS ON 10/OCT/2012.
     Route: 065
     Dates: start: 20120829, end: 20121010
  2. CARBOPLATIN [Suspect]
     Indication: OVARIAN CANCER
     Route: 065
     Dates: start: 20120829, end: 20121010
  3. PACLITAXEL [Suspect]
     Indication: OVARIAN CANCER
     Route: 065
     Dates: start: 20120829, end: 20121010
  4. YONDELIS [Concomitant]
     Route: 065
     Dates: start: 20121024
  5. MYOCET [Concomitant]
     Route: 065
     Dates: start: 20121024

REACTIONS (8)
  - Death [Fatal]
  - Hypertension [Unknown]
  - Tachycardia [Unknown]
  - Anxiety [Unknown]
  - Neoplasm malignant [Unknown]
  - Depression [Unknown]
  - Ileus [Unknown]
  - Hepatic failure [Unknown]
